FAERS Safety Report 9550385 (Version 1)
Quarter: 2013Q3

REPORT INFORMATION
  Report Type: Spontaneous
  Country: US (occurrence: US)
  Receive Date: 20130924
  Receipt Date: 20130924
  Transmission Date: 20140515
  Serious: No
  Sender: FDA-Public Use
  Company Number: US-SANOFI-AVENTIS-2013SA092266

PATIENT
  Sex: Female
  Weight: 66 kg

DRUGS (5)
  1. AUBAGIO [Suspect]
     Route: 048
  2. DIOVANE [Concomitant]
     Route: 048
  3. NEXIUM [Concomitant]
     Route: 065
  4. NEBIVOLOL [Concomitant]
     Route: 065
  5. DEXLANSOPRAZOLE [Concomitant]
     Route: 065

REACTIONS (2)
  - Acne [Unknown]
  - Paraesthesia [Unknown]
